FAERS Safety Report 13426693 (Version 1)
Quarter: 2017Q2

REPORT INFORMATION
  Report Type: Spontaneous
  Country: US (occurrence: US)
  Receive Date: 20170411
  Receipt Date: 20170411
  Transmission Date: 20170830
  Serious: No
  Sender: FDA-Public Use
  Company Number: US-ASTRAZENECA-2017SE35530

PATIENT
  Sex: Male

DRUGS (1)
  1. NEXIUM [Suspect]
     Active Substance: ESOMEPRAZOLE MAGNESIUM
     Indication: GASTROOESOPHAGEAL REFLUX DISEASE
     Route: 048
     Dates: start: 2001

REACTIONS (5)
  - Blood magnesium increased [Unknown]
  - Drug ineffective [Unknown]
  - Hiatus hernia [Not Recovered/Not Resolved]
  - Pollakiuria [Unknown]
  - Gastrooesophageal reflux disease [Unknown]
